FAERS Safety Report 18112020 (Version 1)
Quarter: 2020Q3

REPORT INFORMATION
  Report Type: Report from Study
  Country: None (occurrence: DE)
  Receive Date: 20200805
  Receipt Date: 20200805
  Transmission Date: 20201103
  Serious: Yes (Hospitalization)
  Sender: FDA-Public Use
  Company Number: DE-ABBVIE-20K-062-3506872-00

PATIENT
  Age: 64 Year
  Sex: Female

DRUGS (6)
  1. ENBREL [Concomitant]
     Active Substance: ETANERCEPT
     Indication: PRODUCT USED FOR UNKNOWN INDICATION
     Dates: start: 201303, end: 201309
  2. MTX [Concomitant]
     Active Substance: METHOTREXATE SODIUM
     Indication: PRODUCT USED FOR UNKNOWN INDICATION
     Dosage: BETWEEN 16 SEP 2013?25 MAR 2014
  3. ROACTEMRA [Concomitant]
     Active Substance: TOCILIZUMAB
     Indication: PRODUCT USED FOR UNKNOWN INDICATION
     Dates: start: 201812, end: 202001
  4. LEFLUNOMIDE. [Concomitant]
     Active Substance: LEFLUNOMIDE
     Indication: PRODUCT USED FOR UNKNOWN INDICATION
     Dosage: STOP DATE TEXT:BETWEEN 06SEP2012?29NOV2012
  5. HUMIRA [Suspect]
     Active Substance: ADALIMUMAB
     Indication: RHEUMATOID ARTHRITIS
     Route: 058
     Dates: start: 201309, end: 201406
  6. LEFLUNOMIDE. [Concomitant]
     Active Substance: LEFLUNOMIDE
     Dosage: START DATE TEXT:BETWEEN 06SEP2012?29NOV2012?STOP DATE TEXT:BETWEEN 14MAR2013?16SEP2013

REACTIONS (4)
  - Anti-cyclic citrullinated peptide antibody negative [Unknown]
  - Pneumonia [Unknown]
  - Blood pressure increased [Unknown]
  - Seronegative arthritis [Unknown]

NARRATIVE: CASE EVENT DATE: 20180913
